FAERS Safety Report 16311761 (Version 1)
Quarter: 2019Q2

REPORT INFORMATION
  Report Type: Spontaneous
  Country: US (occurrence: US)
  Receive Date: 20190514
  Receipt Date: 20190514
  Transmission Date: 20190711
  Serious: No
  Sender: FDA-Public Use
  Company Number: US-TEIKOKU PHARMA USA-TPU2019-00405

PATIENT
  Age: 53 Year
  Sex: Male
  Weight: 86.26 kg

DRUGS (6)
  1. POTASSIUM MAGNESIUM ASPERTATE [Concomitant]
     Indication: ROUTINE HEALTH MAINTENANCE
     Dosage: 1 TABLET PER DAY
     Dates: start: 2018
  2. LIDOCAINE PATCH [Suspect]
     Active Substance: LIDOCAINE
     Indication: ARTHRALGIA
     Dosage: APPLY 2 PATCHES PER DAY NO MORE THAN 12 HOURS
     Route: 061
     Dates: start: 201904, end: 20190430
  3. OSTEO BI-FLEX [Concomitant]
     Active Substance: CHONDROITIN SULFATE A\GLUCOSAMINE
     Indication: ARTHROPATHY
     Dosage: 1 TABLET PER DAY
  4. CENTRAL VITE MEN^S OVER 50 [Concomitant]
     Indication: ROUTINE HEALTH MAINTENANCE
  5. MELOXICAM. [Concomitant]
     Active Substance: MELOXICAM
     Indication: ARTHRALGIA
     Dates: start: 201902
  6. AGELESS MALE PERFORMANCE [Concomitant]
     Indication: ANDROGENS ABNORMAL
     Dosage: 1 TABLET PER DAY
     Dates: start: 2018

REACTIONS (1)
  - Application site rash [Not Recovered/Not Resolved]

NARRATIVE: CASE EVENT DATE: 201904
